FAERS Safety Report 21604783 (Version 2)
Quarter: 2022Q4

REPORT INFORMATION
  Report Type: Report from Study
  Country: CO (occurrence: CO)
  Receive Date: 20221116
  Receipt Date: 20221230
  Transmission Date: 20230112
  Serious: Yes (Hospitalization, Other)
  Sender: FDA-Public Use
  Company Number: CO-KYOWAKIRIN-2022BKK017452

PATIENT

DRUGS (2)
  1. CRYSVITA [Suspect]
     Active Substance: BUROSUMAB-TWZA
     Indication: Hereditary hypophosphataemic rickets
     Dosage: 30 MG, 1X/2 WEEKS (30 MG,1 IN 14 D)
     Route: 058
     Dates: start: 20221014, end: 20221014
  2. CRYSVITA [Suspect]
     Active Substance: BUROSUMAB-TWZA
     Dosage: 30 MG, 1X/2 WEEKS (30 MG,1 IN 14 D)
     Route: 058
     Dates: start: 20221028

REACTIONS (3)
  - Urinary tract infection [Recovered/Resolved]
  - Parasitic gastroenteritis [Unknown]
  - Viral infection [Unknown]

NARRATIVE: CASE EVENT DATE: 20221031
